FAERS Safety Report 20645331 (Version 1)
Quarter: 2022Q1

REPORT INFORMATION
  Report Type: Spontaneous
  Country: GB (occurrence: GB)
  Receive Date: 20220328
  Receipt Date: 20220328
  Transmission Date: 20220423
  Serious: Yes (Hospitalization)
  Sender: FDA-Public Use
  Company Number: GB-TEVA-2022-GB-2021155

PATIENT
  Age: 45 Year
  Sex: Male

DRUGS (9)
  1. MYFENAX [Suspect]
     Active Substance: MYCOPHENOLATE MOFETIL
  2. STREPTODORNASE\STREPTOKINASE [Concomitant]
     Active Substance: STREPTODORNASE\STREPTOKINASE
  3. FUNGIZONE [Concomitant]
     Active Substance: AMPHOTERICIN B
  4. TACROLIMUS [Concomitant]
     Active Substance: TACROLIMUS
  5. MINI-PLASCO [Concomitant]
     Dosage: WAT FOR INJ 10ML20
     Route: 065
  6. MINI-PLASCO [Concomitant]
     Dosage: INJ 5ML 20
     Route: 065
  7. PREDNISOLONE [Concomitant]
     Active Substance: PREDNISOLONE
  8. LEVOFLOXACIN [Concomitant]
     Active Substance: LEVOFLOXACIN
  9. WATER FOR INJECTION [Concomitant]
     Active Substance: WATER
     Dosage: 10ML AMP20

REACTIONS (2)
  - COVID-19 [Recovering/Resolving]
  - Lung disorder [Unknown]

NARRATIVE: CASE EVENT DATE: 20220101
